FAERS Safety Report 14965316 (Version 1)
Quarter: 2018Q2

REPORT INFORMATION
  Report Type: Spontaneous
  Country: US (occurrence: US)
  Receive Date: 20180601
  Receipt Date: 20180601
  Transmission Date: 20180711
  Serious: No
  Sender: FDA-Public Use
  Company Number: US-ACTELION-A-NJ2018-171502

PATIENT
  Age: 62 Year
  Sex: Female
  Weight: 95.24 kg

DRUGS (2)
  1. UPTRAVI [Suspect]
     Active Substance: SELEXIPAG
     Indication: PULMONARY HYPERTENSION
     Dosage: 400MCG QAM, 600MCG QPM
     Route: 048
  2. UPTRAVI [Suspect]
     Active Substance: SELEXIPAG
     Dosage: 800 MCG, BID
     Route: 048

REACTIONS (5)
  - Therapy non-responder [Unknown]
  - Oxygen consumption increased [Unknown]
  - Intentional product use issue [Unknown]
  - Frequent bowel movements [Unknown]
  - Dyspnoea [Unknown]
